FAERS Safety Report 11869991 (Version 4)
Quarter: 2016Q3

REPORT INFORMATION
  Report Type: Report from Study
  Country: CA (occurrence: CA)
  Receive Date: 20151228
  Receipt Date: 20160919
  Transmission Date: 20161109
  Serious: Yes (Other)
  Sender: FDA-Public Use
  Company Number: CA-ROCHE-1621453

PATIENT
  Age: 62 Year
  Sex: Male

DRUGS (38)
  1. EFFEXOR [Concomitant]
     Active Substance: VENLAFAXINE HYDROCHLORIDE
  2. MESTINON [Concomitant]
     Active Substance: PYRIDOSTIGMINE BROMIDE
     Route: 065
     Dates: end: 20130927
  3. VITAMIN C [Concomitant]
     Active Substance: ASCORBIC ACID
  4. TRIAMCINOLONE [Concomitant]
     Active Substance: TRIAMCINOLONE
  5. LYRICA [Concomitant]
     Active Substance: PREGABALIN
     Route: 065
  6. PREDNISONE. [Concomitant]
     Active Substance: PREDNISONE
     Route: 065
     Dates: start: 20111030
  7. PREDNISONE. [Concomitant]
     Active Substance: PREDNISONE
     Dosage: 01/NOV TO 31/DEC/2013
     Route: 065
  8. MESTINON [Concomitant]
     Active Substance: PYRIDOSTIGMINE BROMIDE
     Dosage: 3 TO 4 PILL PER DAY
     Route: 065
     Dates: start: 20140801
  9. RITUXAN [Suspect]
     Active Substance: RITUXIMAB
     Indication: MYASTHENIA GRAVIS
     Route: 042
     Dates: start: 20120220
  10. NEXIUM [Concomitant]
     Active Substance: ESOMEPRAZOLE MAGNESIUM
     Route: 065
  11. PREDNISONE. [Concomitant]
     Active Substance: PREDNISONE
     Route: 065
     Dates: start: 20110628
  12. PREDNISONE. [Concomitant]
     Active Substance: PREDNISONE
     Route: 065
     Dates: start: 20140204
  13. PROGRAF [Suspect]
     Active Substance: TACROLIMUS\TACROLIMUS ANHYDROUS
     Indication: PRODUCT USED FOR UNKNOWN INDICATION
     Route: 065
  14. EZETROL [Concomitant]
     Active Substance: EZETIMIBE
  15. PREDNISONE. [Concomitant]
     Active Substance: PREDNISONE
     Route: 065
  16. PREDNISONE. [Concomitant]
     Active Substance: PREDNISONE
     Route: 065
     Dates: start: 20111002
  17. PREDNISONE. [Concomitant]
     Active Substance: PREDNISONE
     Route: 065
     Dates: start: 20111225
  18. PREDNISONE. [Concomitant]
     Active Substance: PREDNISONE
     Route: 065
     Dates: start: 20140101
  19. MESTINON [Concomitant]
     Active Substance: PYRIDOSTIGMINE BROMIDE
     Route: 065
  20. RITUXAN [Suspect]
     Active Substance: RITUXIMAB
     Route: 042
     Dates: start: 20150827
  21. ASA [Concomitant]
     Active Substance: ASPIRIN
     Route: 065
  22. PREDNISONE. [Concomitant]
     Active Substance: PREDNISONE
     Route: 065
     Dates: start: 20110617
  23. PREDNISONE. [Concomitant]
     Active Substance: PREDNISONE
     Route: 065
     Dates: start: 20120122
  24. PREDNISONE. [Concomitant]
     Active Substance: PREDNISONE
     Route: 065
     Dates: start: 20140401
  25. ACLASTA [Concomitant]
     Active Substance: ZOLEDRONIC ACID
     Route: 042
  26. OMEGA 3 [Concomitant]
     Active Substance: OMEGA-3 FATTY ACIDS
     Route: 065
  27. TYLENOL [Concomitant]
     Active Substance: ACETAMINOPHEN
     Route: 048
     Dates: start: 20150827
  28. PREDNISONE. [Concomitant]
     Active Substance: PREDNISONE
     Route: 065
     Dates: start: 20110729
  29. PREDNISONE. [Concomitant]
     Active Substance: PREDNISONE
     Route: 065
     Dates: start: 20140304
  30. FLOMAX [Concomitant]
     Active Substance: TAMSULOSIN HYDROCHLORIDE
     Route: 065
  31. ASPIRIN. [Concomitant]
     Active Substance: ASPIRIN
  32. PREDNISONE. [Concomitant]
     Active Substance: PREDNISONE
     Route: 065
     Dates: start: 20111129
  33. BENADRYL [Concomitant]
     Active Substance: DIPHENHYDRAMINE HYDROCHLORIDE
     Route: 048
     Dates: start: 20150827
  34. RESTASIS [Concomitant]
     Active Substance: CYCLOSPORINE
  35. PREDNISONE. [Concomitant]
     Active Substance: PREDNISONE
     Route: 065
     Dates: start: 20110715
  36. PREDNISONE. [Concomitant]
     Active Substance: PREDNISONE
     Route: 065
     Dates: start: 20110904
  37. RESTASIS [Concomitant]
     Active Substance: CYCLOSPORINE
     Dosage: 2 DROPS PER DAY
     Route: 065
     Dates: start: 20140202
  38. VENLAFAXINE [Concomitant]
     Active Substance: VENLAFAXINE HYDROCHLORIDE

REACTIONS (33)
  - Cognitive disorder [Not Recovered/Not Resolved]
  - Diplopia [Unknown]
  - Eyelid ptosis [Unknown]
  - Spinal column stenosis [Unknown]
  - Neutrophil count increased [Recovered/Resolved]
  - Glomerular filtration rate decreased [Unknown]
  - Low density lipoprotein increased [Unknown]
  - Blood pressure increased [Unknown]
  - Blepharospasm [Unknown]
  - Postural tremor [Unknown]
  - Gamma-glutamyltransferase increased [Unknown]
  - White blood cell count increased [Recovering/Resolving]
  - Blood cholesterol increased [Unknown]
  - Transient ischaemic attack [Unknown]
  - Sleep apnoea syndrome [Unknown]
  - Haemoglobin decreased [Unknown]
  - Muscular weakness [Unknown]
  - Restrictive pulmonary disease [Unknown]
  - Radiculopathy [Unknown]
  - Asthenia [Unknown]
  - Blood pressure decreased [Unknown]
  - Fatigue [Unknown]
  - Peripheral sensory neuropathy [Unknown]
  - Blood urea increased [Unknown]
  - Blood immunoglobulin G decreased [Unknown]
  - Gait disturbance [Unknown]
  - Muscle contractions involuntary [Unknown]
  - Blood creatinine increased [Unknown]
  - Monocyte count increased [Recovering/Resolving]
  - Pain [Recovering/Resolving]
  - Vertebral foraminal stenosis [Unknown]
  - Nausea [Unknown]
  - Blood pressure fluctuation [Unknown]

NARRATIVE: CASE EVENT DATE: 20151223
